FAERS Safety Report 11787230 (Version 1)
Quarter: 2015Q4

REPORT INFORMATION
  Report Type: Spontaneous
  Country: DE (occurrence: DE)
  Receive Date: 20151130
  Receipt Date: 20151130
  Transmission Date: 20160305
  Serious: Yes (Other)
  Sender: FDA-Public Use
  Company Number: DE-WATSON-2015-17676

PATIENT
  Sex: Male
  Weight: 110 kg

DRUGS (2)
  1. SILODOSIN (UNKNOWN) [Suspect]
     Active Substance: SILODOSIN
     Dosage: 4 MG, DAILY
     Route: 048
  2. SILODOSIN (UNKNOWN) [Suspect]
     Active Substance: SILODOSIN
     Indication: BENIGN PROSTATIC HYPERPLASIA
     Dosage: 8 MG, DAILY
     Route: 048

REACTIONS (1)
  - Diverticulitis [Recovered/Resolved]
